FAERS Safety Report 18846590 (Version 3)
Quarter: 2021Q1

REPORT INFORMATION
  Report Type: Spontaneous
  Country: US (occurrence: US)
  Receive Date: 20210204
  Receipt Date: 20210317
  Transmission Date: 20210419
  Serious: Yes (Hospitalization, Other)
  Sender: FDA-Public Use
  Company Number: US-PFIZER INC-2021101277

PATIENT
  Age: 88 Year
  Sex: Female

DRUGS (1)
  1. VYNDAMAX [Suspect]
     Active Substance: TAFAMIDIS
     Dosage: 61 MG

REACTIONS (26)
  - Bradycardia [Unknown]
  - Arthritis [Unknown]
  - Abdominal distension [Unknown]
  - Dizziness [Unknown]
  - Acute left ventricular failure [Unknown]
  - Pain [Unknown]
  - Diverticulitis [Unknown]
  - Pain in extremity [Unknown]
  - Dyspnoea [Unknown]
  - Weight decreased [Unknown]
  - Diarrhoea [Unknown]
  - Somnolence [Unknown]
  - Feeding disorder [Unknown]
  - Cardiac failure acute [Unknown]
  - Oedema peripheral [Recovered/Resolved]
  - Gait disturbance [Unknown]
  - Abdominal pain [Unknown]
  - Illness [Unknown]
  - Facial pain [Unknown]
  - Constipation [Unknown]
  - Urinary retention [Unknown]
  - Muscular weakness [Unknown]
  - Depressed mood [Unknown]
  - Malaise [Unknown]
  - Fatigue [Unknown]
  - Cough [Unknown]

NARRATIVE: CASE EVENT DATE: 202002
